FAERS Safety Report 8306617 (Version 2)
Quarter: 2013Q4

REPORT INFORMATION
  Report Type: Spontaneous
  Country: US (occurrence: US)
  Receive Date: 20111222
  Receipt Date: 20131223
  Transmission Date: 20140711
  Serious: Yes (Other)
  Sender: FDA-Public Use
  Company Number: US-BAYER-2011-120954

PATIENT
  Age: 29 Year
  Sex: Female

DRUGS (4)
  1. YAZ [Suspect]
     Dosage: UNK
     Dates: start: 200911, end: 200912
  2. BENTYL [Concomitant]
     Dosage: 20 MG, QID
     Route: 048
     Dates: start: 20091122
  3. VICODIN [Concomitant]
     Dosage: 500- 5MG Q4HR, PRN
     Dates: start: 20091122
  4. ALBUTEROL [Concomitant]
     Dosage: UNK UNK, PRN
     Dates: start: 20091203

REACTIONS (7)
  - Gallbladder disorder [None]
  - Cholecystitis chronic [None]
  - Post cholecystectomy syndrome [None]
  - Injury [None]
  - Pain [None]
  - Anxiety [None]
  - Gastrointestinal disorder [None]
